FAERS Safety Report 22312158 (Version 5)
Quarter: 2023Q2

REPORT INFORMATION
  Report Type: Report from Study
  Country: US (occurrence: US)
  Receive Date: 20230512
  Receipt Date: 20230628
  Transmission Date: 20230721
  Serious: Yes (Other)
  Sender: FDA-Public Use
  Company Number: US-ABBVIE-4763352

PATIENT
  Sex: Female

DRUGS (4)
  1. RINVOQ [Suspect]
     Active Substance: UPADACITINIB
     Indication: Rheumatoid arthritis
     Dosage: FORM STRENGTH : 15 MILLIGRAM
     Route: 048
     Dates: start: 20230209, end: 202303
  2. RINVOQ [Suspect]
     Active Substance: UPADACITINIB
     Indication: Rheumatoid arthritis
     Route: 048
     Dates: start: 20230519, end: 202306
  3. RINVOQ [Suspect]
     Active Substance: UPADACITINIB
     Indication: Rheumatoid arthritis
     Dosage: FORM STRENGTH: 15 MG
     Route: 048
     Dates: start: 20230619
  4. RINVOQ [Suspect]
     Active Substance: UPADACITINIB
     Indication: Rheumatoid arthritis
     Dosage: FORM STRENGTH: 15 MG
     Route: 048
     Dates: start: 2023, end: 2023

REACTIONS (14)
  - Foot deformity [Recovering/Resolving]
  - Inflammation [Not Recovered/Not Resolved]
  - Drug ineffective [Unknown]
  - Toe operation [Recovering/Resolving]
  - Raynaud^s phenomenon [Unknown]
  - Menopause [Unknown]
  - Epistaxis [Unknown]
  - Haematochezia [Recovered/Resolved]
  - Dyspnoea [Unknown]
  - Abdominal pain [Unknown]
  - Musculoskeletal stiffness [Not Recovered/Not Resolved]
  - Surgery [Unknown]
  - Frequent bowel movements [Unknown]
  - Fibromyalgia [Unknown]

NARRATIVE: CASE EVENT DATE: 20230101
